FAERS Safety Report 23260731 (Version 1)
Quarter: 2023Q4

REPORT INFORMATION
  Report Type: Spontaneous
  Country: US (occurrence: US)
  Receive Date: 20231205
  Receipt Date: 20231205
  Transmission Date: 20240109
  Serious: No
  Sender: FDA-Public Use
  Company Number: US-GSK-US2023167087

PATIENT
  Sex: Female

DRUGS (1)
  1. BREO ELLIPTA [Suspect]
     Active Substance: FLUTICASONE FUROATE\VILANTEROL TRIFENATATE
     Indication: Pulmonary oedema
     Dosage: 1 PUFF(S), QD

REACTIONS (3)
  - Dysphonia [Not Recovered/Not Resolved]
  - Dysarthria [Not Recovered/Not Resolved]
  - Product use in unapproved indication [Unknown]
